FAERS Safety Report 5533386-5 (Version None)
Quarter: 2007Q4

REPORT INFORMATION
  Report Type: 
  Country: None (occurrence: None)
  Receive Date: 20071204
  Receipt Date: 20071123
  Transmission Date: 20080405
  Serious: Yes (Death, Life-Threatening, Other)
  Sender: FDA-Public Use
  Company Number: GB-JNJFOC-20071109511

PATIENT
  Sex: Female
  Weight: 65 kg

DRUGS (12)
  1. REMICADE [Suspect]
     Indication: RHEUMATOID ARTHRITIS
     Route: 042
  2. METHOTREXATE [Concomitant]
  3. PREDNISOLONE [Concomitant]
  4. ADIPINE [Concomitant]
  5. ASPIRIN [Concomitant]
  6. FOLIC ACID [Concomitant]
  7. LOSEC [Concomitant]
  8. METOPROLOL [Concomitant]
  9. RAMIPRIL [Concomitant]
  10. SIMVASTATIN [Concomitant]
  11. SPIRONOLACTONE [Concomitant]
  12. VOLSAID [Concomitant]

REACTIONS (1)
  - LUNG NEOPLASM MALIGNANT [None]
